FAERS Safety Report 11987769 (Version 20)
Quarter: 2018Q2

REPORT INFORMATION
  Report Type: Report from Study
  Country: CA (occurrence: CA)
  Receive Date: 20160202
  Receipt Date: 20180630
  Transmission Date: 20180711
  Serious: Yes (Other)
  Sender: FDA-Public Use
  Company Number: CA-ROCHE-1552938

PATIENT
  Age: 83 Year
  Sex: Female
  Weight: 59 kg

DRUGS (8)
  1. ALENDRONATE [Concomitant]
     Active Substance: ALENDRONATE SODIUM
  2. CRESTOR [Concomitant]
     Active Substance: ROSUVASTATIN CALCIUM
  3. ACTEMRA [Suspect]
     Active Substance: TOCILIZUMAB
     Indication: RHEUMATOID ARTHRITIS
     Route: 042
     Dates: start: 20140822
  4. CLOPIDOGREL [Concomitant]
     Active Substance: CLOPIDOGREL BISULFATE
  5. ACTEMRA [Suspect]
     Active Substance: TOCILIZUMAB
     Route: 042
     Dates: start: 20150402
  6. ATENOLOL. [Concomitant]
     Active Substance: ATENOLOL
  7. COVERSYL [Concomitant]
     Active Substance: PERINDOPRIL
  8. PREDNISONE. [Concomitant]
     Active Substance: PREDNISONE

REACTIONS (28)
  - Lower respiratory tract infection [Recovered/Resolved]
  - Arthralgia [Not Recovered/Not Resolved]
  - Oxygen saturation decreased [Unknown]
  - Back pain [Not Recovered/Not Resolved]
  - Blood pressure diastolic decreased [Unknown]
  - Weight decreased [Unknown]
  - Blood pressure decreased [Unknown]
  - Dermatitis [Unknown]
  - Eye infection [Unknown]
  - Nasopharyngitis [Recovered/Resolved]
  - Oxygen saturation decreased [Unknown]
  - Blood pressure diastolic decreased [Unknown]
  - Aphthous ulcer [Recovering/Resolving]
  - Drug ineffective [Unknown]
  - Hypotension [Unknown]
  - Blood pressure systolic increased [Unknown]
  - Cystitis [Not Recovered/Not Resolved]
  - Rash [Unknown]
  - Weight increased [Unknown]
  - Oral herpes [Not Recovered/Not Resolved]
  - Loss of personal independence in daily activities [Unknown]
  - Infected cyst [Recovering/Resolving]
  - Heart rate decreased [Unknown]
  - Blood pressure increased [Unknown]
  - Cyst [Recovering/Resolving]
  - Dermatitis [Not Recovered/Not Resolved]
  - Cough [Unknown]
  - Blood pressure fluctuation [Unknown]

NARRATIVE: CASE EVENT DATE: 201503
